FAERS Safety Report 5003505-8 (Version None)
Quarter: 2006Q2

REPORT INFORMATION
  Report Type: 
  Country: None (occurrence: None)
  Receive Date: 20060512
  Receipt Date: 20060505
  Transmission Date: 20061013
  Serious: Yes (Hospitalization)
  Sender: FDA-Public Use
  Company Number: 2006BI002437

PATIENT
  Sex: Female

DRUGS (1)
  1. AVONEX [Suspect]
     Indication: MULTIPLE SCLEROSIS
     Dates: start: 20000801

REACTIONS (6)
  - CONDITION AGGRAVATED [None]
  - FALL [None]
  - LIMB INJURY [None]
  - MULTIPLE SCLEROSIS [None]
  - PATELLA FRACTURE [None]
  - WHEELCHAIR USER [None]
